FAERS Safety Report 5615003-9 (Version None)
Quarter: 2008Q1

REPORT INFORMATION
  Report Type: 
  Country: None (occurrence: None)
  Receive Date: 20080206
  Receipt Date: 20080129
  Transmission Date: 20080703
  Serious: Yes (Other)
  Sender: FDA-Public Use
  Company Number: PHBS2007JP20381

PATIENT
  Age: 14 Year
  Sex: Male
  Weight: 62 kg

DRUGS (3)
  1. CAFERGOT [Suspect]
     Indication: MIGRAINE
     Dosage: 1 TO 2 DF/D
     Route: 048
     Dates: start: 20061012, end: 20071129
  2. TEGRETOL [Suspect]
     Indication: MIGRAINE
     Dosage: 400 MG
     Route: 048
     Dates: start: 20070208, end: 20070827
  3. TEGRETOL [Suspect]
     Dosage: 200 MG THREE TIMES DAILY
     Route: 048
     Dates: start: 20070828, end: 20071129

REACTIONS (3)
  - BLOOD ALKALINE PHOSPHATASE INCREASED [None]
  - COLLAGEN DISORDER [None]
  - RAYNAUD'S PHENOMENON [None]
